FAERS Safety Report 8694927 (Version 2)
Quarter: 2012Q4

REPORT INFORMATION
  Report Type: 
  Country: US (occurrence: US)
  Receive Date: 20120731
  Receipt Date: 20120828
  Transmission Date: 20130627
  Serious: Yes (Other)
  Sender: FDA-Public Use
  Company Number: PHEH2012US014822

PATIENT
  Age: 52 Year
  Sex: Male
  Weight: 81.63 kg

DRUGS (11)
  1. GILENYA [Suspect]
     Indication: RELAPSING-REMITTING MULTIPLE SCLEROSIS
     Dosage: 0.5 mg, QD
     Route: 048
     Dates: start: 20120717
  2. DETROL [Concomitant]
     Dosage: 1 DF, QD
     Route: 048
     Dates: start: 20111222
  3. LIORESAL [Concomitant]
     Dates: start: 20120727
  4. LOVAZA [Concomitant]
     Dosage: 2 DF, BID
     Route: 048
     Dates: start: 20120312
  5. NAPROXEN [Concomitant]
     Dosage: 2 DF, BID
     Route: 048
     Dates: start: 20111115
  6. NEXIUM [Concomitant]
     Dosage: 1 DF, QD
     Route: 048
     Dates: start: 20110328
  7. PRAMIPEXOLE DIHYDROCHLORIDE [Concomitant]
     Dosage: 1 DF, QHS
     Route: 048
     Dates: start: 20101124
  8. PRAVASTATIN SODIUM [Concomitant]
     Dosage: 1 DF, QD
     Route: 048
     Dates: start: 20120706
  9. VIAGRA [Concomitant]
     Dosage: 1 DF, QD 1 hour before needed.
     Route: 048
     Dates: start: 20110114
  10. VICODIN ES [Concomitant]
     Dosage: 1 DF, PRN
     Dates: start: 20110520
  11. ZOLOFT [Concomitant]
     Dosage: 1 DF, QD
     Route: 048

REACTIONS (9)
  - Phlebitis [Not Recovered/Not Resolved]
  - Cellulitis [Unknown]
  - Induration [Unknown]
  - Erythema [Unknown]
  - Skin disorder [Unknown]
  - Muscle spasms [Unknown]
  - Oedema peripheral [Unknown]
  - Heart rate decreased [None]
  - Blood pressure diastolic decreased [None]
